FAERS Safety Report 21298003 (Version 1)
Quarter: 2022Q3

REPORT INFORMATION
  Report Type: Spontaneous
  Country: US (occurrence: None)
  Receive Date: 20220902
  Receipt Date: 20220902
  Transmission Date: 20221027
  Serious: No
  Sender: FDA-Public Use
  Company Number: None

PATIENT

DRUGS (1)
  1. AMBRISENTAN [Suspect]
     Active Substance: AMBRISENTAN

REACTIONS (6)
  - Swollen tongue [None]
  - Drooling [None]
  - Nausea [None]
  - Dizziness [None]
  - Somnolence [None]
  - Condition aggravated [None]

NARRATIVE: CASE EVENT DATE: 20220829
